FAERS Safety Report 7359084-3 (Version None)
Quarter: 2011Q1

REPORT INFORMATION
  Report Type: 
  Country: None (occurrence: None)
  Receive Date: 20110317
  Receipt Date: 20110228
  Transmission Date: 20110831
  Serious: Yes (Other)
  Sender: FDA-Public Use
  Company Number: US-BAYER-201030347NA

PATIENT
  Sex: Female
  Weight: 116.1 kg

DRUGS (7)
  1. UNCODEABLE ^UNCLASSIFIABLE^ [Concomitant]
     Route: 048
  2. BENADRYL [Concomitant]
  3. UNCODEABLE ^UNCLASSIFIABLE^ [Concomitant]
  4. PREVACID [Concomitant]
     Dosage: DAILY DOSE 30 MG
     Route: 048
  5. DOCUSATE SODIUM [Concomitant]
     Dosage: 100 MG, BID
     Route: 048
  6. YASMIN [Suspect]
     Indication: PRODUCT USED FOR UNKNOWN INDICATION
     Route: 048
     Dates: start: 20041201, end: 20070715
  7. OCELLA [Suspect]
     Indication: PRODUCT USED FOR UNKNOWN INDICATION
     Route: 048
     Dates: start: 20080701, end: 20091015

REACTIONS (2)
  - CHOLECYSTITIS [None]
  - ABDOMINAL PAIN UPPER [None]
